FAERS Safety Report 12536954 (Version 2)
Quarter: 2016Q4

REPORT INFORMATION
  Report Type: Spontaneous
  Country: DE (occurrence: DE)
  Receive Date: 20160707
  Receipt Date: 20161017
  Transmission Date: 20170207
  Serious: Yes (Hospitalization)
  Sender: FDA-Public Use
  Company Number: DE-JNJFOC-20160702039

PATIENT
  Age: 20 Year
  Sex: Male
  Weight: 99 kg

DRUGS (1)
  1. RISPERDAL CONSTA [Suspect]
     Active Substance: RISPERIDONE
     Indication: PSYCHOTIC DISORDER
     Route: 030
     Dates: start: 201601, end: 20160406

REACTIONS (2)
  - Mental disorder [Recovering/Resolving]
  - Psychomotor retardation [Recovering/Resolving]

NARRATIVE: CASE EVENT DATE: 20160406
